FAERS Safety Report 8892121 (Version 2)
Quarter: 2012Q4

REPORT INFORMATION
  Report Type: Report from Study
  Country: US (occurrence: US)
  Receive Date: 20121107
  Receipt Date: 20121109
  Transmission Date: 20130627
  Serious: Yes (Death)
  Sender: FDA-Public Use
  Company Number: US-TEVA-368663USA

PATIENT
  Age: 78 Year
  Sex: Female
  Weight: 54.48 kg

DRUGS (14)
  1. TREANDA [Suspect]
     Route: 042
     Dates: start: 20120927, end: 20120928
  2. VELCADE [Suspect]
     Route: 042
     Dates: start: 20120927, end: 20121003
  3. DEXAMETHASONE [Suspect]
     Route: 048
     Dates: start: 20120927, end: 20121004
  4. AREDIA [Concomitant]
  5. ACYCLOVIR [Concomitant]
     Route: 048
     Dates: start: 20120927, end: 20121008
  6. ZOMETA [Concomitant]
     Indication: MULTIPLE MYELOMA
  7. ASA [Concomitant]
  8. DIOVAN [Concomitant]
     Indication: HYPERTENSION
  9. LASIX [Concomitant]
     Indication: FLUID RETENTION
  10. MEGACE [Concomitant]
  11. METOPROLOL [Concomitant]
     Indication: HYPERTENSION
  12. PROTONIX [Concomitant]
     Indication: GASTROOESOPHAGEAL REFLUX DISEASE
  13. SIMVASTATIN [Concomitant]
     Indication: BLOOD CHOLESTEROL INCREASED
  14. SPIRIVA [Concomitant]
     Indication: CHRONIC OBSTRUCTIVE PULMONARY DISEASE

REACTIONS (1)
  - Cardiac failure congestive [Fatal]
